FAERS Safety Report 6875076-2 (Version None)
Quarter: 2010Q2

REPORT INFORMATION
  Report Type: 
  Country: None (occurrence: None)
  Receive Date: 20100616
  Receipt Date: 20071022
  Transmission Date: 20101027
  Serious: Yes (Hospitalization)
  Sender: FDA-Public Use
  Company Number: S07-USA-05607-01

PATIENT
  Age: 79 Year
  Sex: Female

DRUGS (15)
  1. NAMENDA [Suspect]
     Indication: DEMENTIA
     Dosage: SEE IMAGE
     Route: 048
     Dates: start: 20050101, end: 20050101
  2. NAMENDA [Suspect]
     Indication: DEMENTIA
     Dosage: SEE IMAGE
     Route: 048
     Dates: start: 20050101, end: 20050101
  3. NAMENDA [Suspect]
     Indication: DEMENTIA
     Dosage: SEE IMAGE
     Route: 048
     Dates: start: 20050501, end: 20050101
  4. NAMENDA [Suspect]
     Indication: DEMENTIA
     Dosage: SEE IMAGE
     Route: 048
     Dates: start: 20050101
  5. ARICEPT [Suspect]
     Indication: DEMENTIA
     Dosage: 10 MG (10 MG,ONCE A DAY)
     Dates: start: 20070808, end: 20070902
  6. BENICAR [Concomitant]
  7. BONIVA [Concomitant]
  8. COREG (CARVEDILOL) (CARVDILOL) [Concomitant]
  9. GLIPIZIDE [Concomitant]
  10. LASIX [Concomitant]
  11. GLUCOPHAGE [Concomitant]
  12. LEVOTHYROXINE (LEVOTHYROXINE) (LEVOTHYROXINE) [Concomitant]
  13. NORVASC [Concomitant]
  14. ZOCOR [Concomitant]
  15. POTASSIUM CHLORIDE [Concomitant]

REACTIONS (1)
  - CONVULSION [None]
